FAERS Safety Report 11197520 (Version 1)
Quarter: 2015Q2

REPORT INFORMATION
  Report Type: Spontaneous
  Country: US (occurrence: US)
  Receive Date: 20150617
  Receipt Date: 20150617
  Transmission Date: 20150821
  Serious: No
  Sender: FDA-Public Use
  Company Number: US-GLAXOSMITHKLINE-US2015082842

PATIENT
  Sex: Female

DRUGS (3)
  1. VENTOLIN HFA [Suspect]
     Active Substance: ALBUTEROL SULFATE
     Indication: ASTHMA
     Dosage: 2 DF, QID
  2. METOPROLOL [Concomitant]
     Active Substance: METOPROLOL
  3. RANOLAZINE [Concomitant]
     Active Substance: RANOLAZINE

REACTIONS (3)
  - Somnolence [Recovered/Resolved]
  - Heart rate increased [Recovered/Resolved]
  - Abnormal behaviour [Recovered/Resolved]
